FAERS Safety Report 6412082-6 (Version None)
Quarter: 2009Q4

REPORT INFORMATION
  Report Type: 
  Country: None (occurrence: None)
  Receive Date: 20091020
  Receipt Date: 20091007
  Transmission Date: 20100525
  Serious: Yes (Death, Hospitalization)
  Sender: FDA-Public Use
  Company Number: 2009AC000134

PATIENT
  Age: 80 Year
  Sex: Female

DRUGS (28)
  1. DIGOXIN [Suspect]
     Indication: HEART RATE IRREGULAR
     Dosage: 0.125 MG; 1X; PO
     Route: 048
     Dates: start: 20070105, end: 20080227
  2. LIPITOR [Concomitant]
  3. ALDACTONE [Concomitant]
  4. NAMENDA [Concomitant]
  5. VASOTEC [Concomitant]
  6. COLACE [Concomitant]
  7. LASIX [Concomitant]
  8. ARICEPT [Concomitant]
  9. GEODON [Concomitant]
  10. TRIMETHOPRIM [Concomitant]
  11. DETROL [Concomitant]
  12. AVANDIA [Concomitant]
  13. COUMADIN [Concomitant]
  14. TRAVANTAN [Concomitant]
  15. ASPIRIN [Concomitant]
  16. PREMARIN [Concomitant]
  17. PRILOSEC [Concomitant]
  18. NITROFURANTOIN [Concomitant]
  19. NYSTATIN [Concomitant]
  20. GABAPENTIN [Concomitant]
  21. LISINOPRIL [Concomitant]
  22. ACTOS [Concomitant]
  23. NOVOLOG [Concomitant]
  24. GLIPIZIDE [Concomitant]
  25. MEGESTROL ACETATE [Concomitant]
  26. TRIMETHOPRIM [Concomitant]
  27. DETROL [Concomitant]
  28. AVANDIA [Concomitant]

REACTIONS (31)
  - ACUTE PRERENAL FAILURE [None]
  - ANXIETY [None]
  - ATRIAL FIBRILLATION [None]
  - BLOOD CHOLESTEROL INCREASED [None]
  - BLOOD GLUCOSE INCREASED [None]
  - CARDIAC FAILURE CONGESTIVE [None]
  - CAROTID ARTERY STENOSIS [None]
  - CATARACT [None]
  - CEREBROVASCULAR ACCIDENT [None]
  - CHRONIC OBSTRUCTIVE PULMONARY DISEASE [None]
  - COMPUTERISED TOMOGRAM ABNORMAL [None]
  - CONFUSIONAL STATE [None]
  - DEMENTIA [None]
  - DIABETIC NEUROPATHY [None]
  - DISORIENTATION [None]
  - DYSARTHRIA [None]
  - ECONOMIC PROBLEM [None]
  - GASTROOESOPHAGEAL REFLUX DISEASE [None]
  - INJURY [None]
  - INTERNATIONAL NORMALISED RATIO INCREASED [None]
  - LEFT VENTRICULAR HYPERTROPHY [None]
  - MENTAL STATUS CHANGES [None]
  - MOOD SWINGS [None]
  - OBSTRUCTIVE AIRWAYS DISORDER [None]
  - OPEN ANGLE GLAUCOMA [None]
  - PAIN [None]
  - PNEUMONIA ASPIRATION [None]
  - SEPSIS [None]
  - THERAPEUTIC AGENT TOXICITY [None]
  - TRANSIENT ISCHAEMIC ATTACK [None]
  - URINARY TRACT INFECTION [None]
